FAERS Safety Report 8469387-7 (Version None)
Quarter: 2012Q2

REPORT INFORMATION
  Report Type: 
  Country: None (occurrence: None)
  Receive Date: 20120626
  Receipt Date: 20120621
  Transmission Date: 20120825
  Serious: Yes (Other)
  Sender: FDA-Public Use
  Company Number: US-PFIZER INC-2012130007

PATIENT
  Sex: Female

DRUGS (4)
  1. DIOVAN HCT [Concomitant]
     Dosage: UNK
  2. EXCEDRIN (MIGRAINE) [Concomitant]
     Dosage: UNK
  3. NEURONTIN [Suspect]
     Indication: NEUROPATHY PERIPHERAL
     Dosage: 300 MG, 3X/DAY
     Route: 048
  4. ONGLYZA [Concomitant]
     Dosage: UNK

REACTIONS (1)
  - BACK DISORDER [None]
